FAERS Safety Report 26175585 (Version 1)
Quarter: 2025Q4

REPORT INFORMATION
  Report Type: Spontaneous
  Country: CA (occurrence: CA)
  Receive Date: 20251218
  Receipt Date: 20251218
  Transmission Date: 20260117
  Serious: Yes (Other)
  Sender: PFIZER
  Company Number: CA-PFIZER INC-PV202500146571

PATIENT

DRUGS (7)
  1. MEROPENEM [Suspect]
     Active Substance: MEROPENEM
     Indication: Meningitis tuberculous
     Dosage: UNK
  2. LINEZOLID [Suspect]
     Active Substance: LINEZOLID
     Indication: Meningitis tuberculous
     Dosage: UNK
  3. AMOXICILLIN\CLAVULANATE POTASSIUM [Suspect]
     Active Substance: AMOXICILLIN\CLAVULANATE POTASSIUM
     Indication: Meningitis tuberculous
     Dosage: UNK
  4. BEDAQUILINE [Suspect]
     Active Substance: BEDAQUILINE
     Indication: Meningitis tuberculous
     Dosage: UNK
  5. CYCLOSERINE [Suspect]
     Active Substance: CYCLOSERINE
     Indication: Meningitis tuberculous
     Dosage: UNK
  6. CLOFAZIMINE [Suspect]
     Active Substance: CLOFAZIMINE
     Indication: Meningitis tuberculous
     Dosage: UNK
  7. DELAMANID [Suspect]
     Active Substance: DELAMANID
     Indication: Meningitis tuberculous
     Dosage: UNK

REACTIONS (4)
  - Neutropenia [Unknown]
  - Neuropathy peripheral [Unknown]
  - Ototoxicity [Unknown]
  - Off label use [Unknown]
